FAERS Safety Report 12325646 (Version 2)
Quarter: 2016Q2

REPORT INFORMATION
  Report Type: Spontaneous
  Country: JP (occurrence: JP)
  Receive Date: 20160503
  Receipt Date: 20160606
  Transmission Date: 20160815
  Serious: Yes (Other)
  Sender: FDA-Public Use
  Company Number: JP-ROCHE-1750079

PATIENT
  Age: 67 Year
  Sex: Male

DRUGS (1)
  1. RANIBIZUMAB [Suspect]
     Active Substance: RANIBIZUMAB
     Indication: POLYPOIDAL CHOROIDAL VASCULOPATHY
     Dosage: 5TH: 16 JUN 2015, 7TH: 15 SEP 2015, 8TH: 13 OCT 2015, 9TH: 01 DEC 2015, 10TH: 09 FEB 2016 DOSE?FREQU
     Route: 050

REACTIONS (4)
  - Retinal detachment [Unknown]
  - Vitreous detachment [Unknown]
  - Visual acuity reduced [Unknown]
  - Macular hole [Recovered/Resolved]
